FAERS Safety Report 20884299 (Version 1)
Quarter: 2022Q2

REPORT INFORMATION
  Report Type: Spontaneous
  Country: US (occurrence: US)
  Receive Date: 20220527
  Receipt Date: 20220527
  Transmission Date: 20220721
  Serious: No
  Sender: FDA-Public Use
  Company Number: US-LUPIN PHARMACEUTICALS INC.-2022-07480

PATIENT
  Sex: Female

DRUGS (2)
  1. ALBUTEROL SULFATE [Suspect]
     Active Substance: ALBUTEROL SULFATE
     Indication: Product used for unknown indication
     Dosage: UNK UNK, PRN UNK UNK, PRN 2 PUFFS ON AS NEEDED BASIS
     Dates: start: 20211019
  2. ALBUTEROL SULFATE [Suspect]
     Active Substance: ALBUTEROL SULFATE
     Dosage: UNK UNK,  EVERY 4 HOURS AS NEEDED
     Dates: start: 20220422

REACTIONS (4)
  - Product packaging quantity issue [Unknown]
  - Product preparation error [Unknown]
  - Wrong technique in product usage process [Unknown]
  - No adverse event [Unknown]
